FAERS Safety Report 5251310-X (Version None)
Quarter: 2007Q1

REPORT INFORMATION
  Report Type: 
  Country: None (occurrence: None)
  Receive Date: 20070228
  Receipt Date: 20061107
  Transmission Date: 20070707
  Serious: No
  Sender: FDA-Public Use
  Company Number: US-GLAXOSMITHKLINE-A0621939A

PATIENT
  Age: 44 Year
  Sex: Male

DRUGS (2)
  1. LAMICTAL [Suspect]
     Indication: BIPOLAR DISORDER
     Dosage: 100MG TWICE PER DAY
     Route: 048
     Dates: start: 20060101, end: 20060927
  2. WELLBUTRIN [Concomitant]

REACTIONS (7)
  - BLOOD PRESSURE INCREASED [None]
  - FLUSHING [None]
  - HEADACHE [None]
  - NAUSEA [None]
  - NOREPINEPHRINE INCREASED [None]
  - PYREXIA [None]
  - VOMITING [None]
